FAERS Safety Report 4431166-5 (Version None)
Quarter: 2004Q3

REPORT INFORMATION
  Report Type: 
  Country: None (occurrence: None)
  Receive Date: 20040824
  Receipt Date: 20040813
  Transmission Date: 20050211
  Serious: Yes (Other)
  Sender: FDA-Public Use
  Company Number: US-JNJFOC-20040804838

PATIENT
  Sex: Male

DRUGS (1)
  1. DURAGESIC [Suspect]
     Route: 062
     Dates: start: 20040401, end: 20040701

REACTIONS (2)
  - CONFUSIONAL STATE [None]
  - CONVULSION [None]
